FAERS Safety Report 10012805 (Version 1)
Quarter: 2014Q1

REPORT INFORMATION
  Report Type: Spontaneous
  Country: US (occurrence: US)
  Receive Date: 20140314
  Receipt Date: 20140314
  Transmission Date: 20141002
  Serious: Yes (Other)
  Sender: FDA-Public Use
  Company Number: US-ACTAVIS-2014-04313

PATIENT
  Age: 47 Year
  Sex: Female

DRUGS (6)
  1. CARBIDOPA/LEVODOPA (AELLC) [Suspect]
     Indication: PARKINSON^S DISEASE
     Dosage: 1 TABLET, QPM
     Route: 065
  2. PARCOPA [Suspect]
     Indication: PARKINSON^S DISEASE
     Dosage: 3 TB, QID, 25/100, PLUS 1 OR 2 EXTRA PILLS PER HOUR (SELF ADMINISTRATION)
     Route: 065
  3. PARCOPA [Suspect]
     Indication: INTENTIONAL OVERDOSE
     Dosage: 2.5 TABLET, Q3H
     Route: 065
  4. ROPINIROLE [Concomitant]
     Indication: PARKINSON^S DISEASE
     Dosage: 4 MG, QID
     Route: 065
  5. ROPINIROLE [Concomitant]
     Dosage: 1 MG, BID
     Route: 065
  6. BENZTROPINE [Concomitant]
     Indication: PARKINSON^S DISEASE
     Dosage: 1 MG, BID
     Route: 065

REACTIONS (1)
  - Dopamine dysregulation syndrome [Recovering/Resolving]
